FAERS Safety Report 18898445 (Version 1)
Quarter: 2021Q1

REPORT INFORMATION
  Report Type: Spontaneous
  Country: US (occurrence: US)
  Receive Date: 20210215
  Receipt Date: 20210215
  Transmission Date: 20210420
  Serious: No
  Sender: FDA-Public Use
  Company Number: None

PATIENT
  Age: 70 Year
  Sex: Female
  Weight: 56.7 kg

DRUGS (1)
  1. OCTREOTIDE 50 MCG [Suspect]
     Active Substance: OCTREOTIDE ACETATE
     Indication: NEOPLASM MALIGNANT
     Route: 058
     Dates: start: 20210121, end: 20210128

REACTIONS (3)
  - Alopecia [None]
  - Drug intolerance [None]
  - Abdominal pain upper [None]

NARRATIVE: CASE EVENT DATE: 20210128
